FAERS Safety Report 14262567 (Version 2)
Quarter: 2019Q3

REPORT INFORMATION
  Report Type: Spontaneous
  Country: CA (occurrence: CA)
  Receive Date: 20171208
  Receipt Date: 20190717
  Transmission Date: 20191004
  Serious: Yes (Other)
  Sender: FDA-Public Use
  Company Number: CA-AUROBINDO-AUR-APL-2017-44178

PATIENT

DRUGS (1)
  1. AURO-NEVIRAPINE TABLET [Suspect]
     Active Substance: NEVIRAPINE
     Indication: HIV INFECTION
     Dosage: 200 MG, TWO TIMES A DAY
     Route: 048

REACTIONS (2)
  - Product substitution issue [Recovered/Resolved]
  - Oral administration complication [Recovered/Resolved]
